FAERS Safety Report 4294665-5 (Version None)
Quarter: 2004Q1

REPORT INFORMATION
  Report Type: 
  Country: None (occurrence: None)
  Receive Date: 20040213
  Receipt Date: 20040203
  Transmission Date: 20041129
  Serious: Yes (Hospitalization)
  Sender: FDA-Public Use
  Company Number: FR-GLAXOSMITHKLINE-B0321911A

PATIENT
  Age: 54 Year
  Sex: Male

DRUGS (6)
  1. AVANDIA [Suspect]
     Indication: DIABETES MELLITUS NON-INSULIN-DEPENDENT
     Dosage: 5MG PER DAY
     Route: 048
     Dates: start: 20031011, end: 20031209
  2. APROVEL [Suspect]
     Dosage: 1UNIT PER DAY
     Route: 048
     Dates: end: 20031209
  3. GLUCOPHAGE [Concomitant]
     Dosage: 3UNIT PER DAY
     Route: 048
  4. PHENOXYMETHYLPENICILLIN [Concomitant]
     Dosage: 2IU6 PER DAY
     Route: 065
  5. INTRON A [Concomitant]
     Dosage: 1IU6 THREE TIMES PER WEEK
     Route: 065
  6. TAHOR [Concomitant]
     Dosage: 1UNIT PER DAY
     Route: 048

REACTIONS (2)
  - HYPERTENSION [None]
  - NON-OBSTRUCTIVE CARDIOMYOPATHY [None]
